FAERS Safety Report 19563859 (Version 2)
Quarter: 2025Q1

REPORT INFORMATION
  Report Type: Spontaneous
  Country: IT (occurrence: IT)
  Receive Date: 20210714
  Receipt Date: 20250327
  Transmission Date: 20250409
  Serious: Yes (Death)
  Sender: PFIZER
  Company Number: None

PATIENT
  Age: 73 Year
  Sex: Male

DRUGS (4)
  1. ANIDULAFUNGIN [Suspect]
     Active Substance: ANIDULAFUNGIN
     Indication: Candida infection
  2. AMBISOME [Suspect]
     Active Substance: AMPHOTERICIN B
     Indication: Candida infection
     Dosage: 350 MG, 1X/DAY
  3. TALOFEN [Concomitant]
     Active Substance: PROMAZINE HYDROCHLORIDE
     Indication: Agitation
  4. BACTRIM [Concomitant]
     Active Substance: SULFAMETHOXAZOLE\TRIMETHOPRIM
     Indication: Pneumonia

REACTIONS (1)
  - Cardiac arrest [Fatal]

NARRATIVE: CASE EVENT DATE: 20210618
